FAERS Safety Report 9445276 (Version 5)
Quarter: 2013Q4

REPORT INFORMATION
  Report Type: Report from Study
  Country: ES (occurrence: ES)
  Receive Date: 20130807
  Receipt Date: 20131205
  Transmission Date: 20140711
  Serious: Yes (Life-Threatening)
  Sender: FDA-Public Use
  Company Number: ES-GLAXOSMITHKLINE-B0913334B

PATIENT
  Age: 63 Year
  Sex: Female
  Weight: 58 kg

DRUGS (3)
  1. DABRAFENIB [Suspect]
     Indication: MALIGNANT MELANOMA
     Dosage: 150MG TWICE PER DAY
     Route: 048
     Dates: start: 20130703
  2. TRAMETINIB [Suspect]
     Indication: MALIGNANT MELANOMA
     Dosage: 2MG PER DAY
     Route: 048
     Dates: start: 20130703
  3. PARACETAMOL [Concomitant]
     Indication: MYALGIA
     Dosage: 1000MG TWICE PER DAY
     Route: 048
     Dates: start: 20130726

REACTIONS (2)
  - Liver function test abnormal [Recovered/Resolved]
  - Hepatotoxicity [Unknown]
